FAERS Safety Report 17435068 (Version 1)
Quarter: 2020Q1

REPORT INFORMATION
  Report Type: Spontaneous
  Country: US (occurrence: US)
  Receive Date: 20200204
  Receipt Date: 20200204
  Transmission Date: 20200409
  Serious: Yes (Hospitalization)
  Sender: FDA-Public Use
  Company Number: None

PATIENT
  Age: 50 Year
  Sex: Male

DRUGS (1)
  1. ATRIPLA [Suspect]
     Active Substance: EFAVIRENZ\EMTRICITABINE\TENOFOVIR DISOPROXIL FUMARATE
     Indication: HIV INFECTION
     Dosage: ?          OTHER DOSE:600-200-300MG;?
     Route: 048
     Dates: start: 201703

REACTIONS (3)
  - Rib fracture [None]
  - Walking aid user [None]
  - Fall [None]

NARRATIVE: CASE EVENT DATE: 20200204
